FAERS Safety Report 7040257-4 (Version None)
Quarter: 2010Q4

REPORT INFORMATION
  Report Type: 
  Country: None (occurrence: None)
  Receive Date: 20101012
  Receipt Date: 20101007
  Transmission Date: 20110411
  Serious: Yes (Other)
  Sender: FDA-Public Use
  Company Number: US-PFIZER INC-2010128480

PATIENT
  Sex: Male
  Weight: 95.238 kg

DRUGS (4)
  1. CELEBREX [Suspect]
     Indication: ARTHRITIS
     Dosage: 200 MG, UNK
     Route: 048
     Dates: start: 19990101
  2. LEVOTHYROXINE [Concomitant]
     Indication: THYROID DISORDER
     Dosage: UNK
  3. CARVEDILOL [Concomitant]
     Indication: CARDIAC DISORDER
     Dosage: UNK
  4. RAMIPRIL [Concomitant]
     Indication: CARDIAC DISORDER
     Dosage: UNK

REACTIONS (4)
  - COELIAC DISEASE [None]
  - DIARRHOEA [None]
  - RED BLOOD CELL COUNT DECREASED [None]
  - WHITE BLOOD CELL COUNT INCREASED [None]
